FAERS Safety Report 19635693 (Version 2)
Quarter: 2022Q1

REPORT INFORMATION
  Report Type: Spontaneous
  Country: US (occurrence: US)
  Receive Date: 20210729
  Receipt Date: 20220202
  Transmission Date: 20220424
  Serious: No
  Sender: FDA-Public Use
  Company Number: US-LUPIN PHARMACEUTICALS INC.-2021-13051

PATIENT
  Age: 37 Year
  Sex: Male

DRUGS (1)
  1. ALBUTEROL SULFATE [Suspect]
     Active Substance: ALBUTEROL SULFATE
     Indication: Asthma
     Dosage: UNK, PRN
     Dates: start: 20210708

REACTIONS (3)
  - Device delivery system issue [Unknown]
  - Device deposit issue [Unknown]
  - No adverse event [Unknown]

NARRATIVE: CASE EVENT DATE: 20210701
